FAERS Safety Report 8890913 (Version 2)
Quarter: 2012Q4

REPORT INFORMATION
  Report Type: 
  Country: US (occurrence: US)
  Receive Date: 20121107
  Receipt Date: 20121231
  Transmission Date: 20130627
  Serious: Yes (Hospitalization, Other)
  Sender: FDA-Public Use
  Company Number: US-ELI_LILLY_AND_COMPANY-US201210009569

PATIENT
  Sex: Female

DRUGS (3)
  1. HUMALOG LISPRO [Suspect]
     Indication: TYPE 1 DIABETES MELLITUS
     Dosage: UNK UNK, prn
  2. HUMALOG LISPRO [Suspect]
     Indication: TYPE 1 DIABETES MELLITUS
     Dosage: UNK, prn
  3. INSULIN [Concomitant]
     Dosage: UNK, unknown

REACTIONS (8)
  - Upper limb fracture [Unknown]
  - Joint arthroplasty [Unknown]
  - Infection [Recovered/Resolved]
  - Fall [Recovered/Resolved]
  - Amnesia [Unknown]
  - Pyrexia [Unknown]
  - Pneumonia [Unknown]
  - Incorrect dose administered [Unknown]
